FAERS Safety Report 17111442 (Version 3)
Quarter: 2022Q1

REPORT INFORMATION
  Report Type: Other
  Country: US (occurrence: None)
  Receive Date: 20191204
  Receipt Date: 20220131
  Transmission Date: 20220424
  Serious: Yes (Other)
  Sender: FDA-Public Use
  Company Number: US-ROCHE-2481581

PATIENT
  Sex: Female

DRUGS (21)
  1. ACTEMRA [Suspect]
     Active Substance: TOCILIZUMAB
     Indication: Rheumatoid arthritis
     Dosage: INJECT 162MG SUBCUTANEOUSLY EVERY OTHER WEEK
     Route: 058
  2. ACTEMRA [Suspect]
     Active Substance: TOCILIZUMAB
     Route: 058
  3. RITUXAN [Suspect]
     Active Substance: RITUXIMAB
     Indication: Rheumatoid arthritis
     Route: 042
  4. ZOLPIDEM TARTRATE [Concomitant]
     Active Substance: ZOLPIDEM TARTRATE
     Dosage: 1 TAB ORAL QHS
     Route: 048
  5. ALENDRONATE [Concomitant]
     Active Substance: ALENDRONATE SODIUM
     Route: 048
  6. LEUCOVORIN [Concomitant]
     Active Substance: LEUCOVORIN
     Dosage: THREE DAYS PER WEEK
  7. ALPRAZOLAM [Concomitant]
     Active Substance: ALPRAZOLAM
     Route: 048
  8. SYNTHROID [Concomitant]
     Active Substance: LEVOTHYROXINE SODIUM
     Dosage: 50 MCG
     Route: 048
  9. OMEPRAZOLE [Concomitant]
     Active Substance: OMEPRAZOLE
     Route: 048
  10. CALCIUM [Concomitant]
     Active Substance: CALCIUM
  11. ASPIRIN [Concomitant]
     Active Substance: ASPIRIN
  12. IBUPROFEN [Concomitant]
     Active Substance: IBUPROFEN
     Dosage: EVERY 8 HR
  13. LEUCOVORIN [Concomitant]
     Active Substance: LEUCOVORIN
  14. POTASSIUM CHLORIDE [Concomitant]
     Active Substance: POTASSIUM CHLORIDE
     Dosage: 20 MEQ , 1 TAB TAKE 2 PILLS 40 MEQ BID TODAY AN 1 PILL BID
     Route: 048
  15. ROSUVASTATIN [Concomitant]
     Active Substance: ROSUVASTATIN
     Route: 048
  16. ASPIRIN [Concomitant]
     Active Substance: ASPIRIN
     Dosage: 2 TAB QD
  17. DULOXETINE [Concomitant]
     Active Substance: DULOXETINE
     Dosage: 1 CAP QD
     Route: 048
  18. CYTOMEL [Concomitant]
     Active Substance: LIOTHYRONINE SODIUM
     Dosage: 25 MCG , 2 TAB DAILY
     Route: 048
  19. LOSARTAN [Concomitant]
     Active Substance: LOSARTAN
  20. FOLIC ACID [Concomitant]
     Active Substance: FOLIC ACID
     Route: 048
  21. METHOTREXATE [Concomitant]
     Active Substance: METHOTREXATE
     Dosage: 7 TAB A WEEK

REACTIONS (25)
  - Burns third degree [Recovered/Resolved]
  - Drug ineffective [Unknown]
  - Nodule [Recovered/Resolved with Sequelae]
  - Arthralgia [Recovering/Resolving]
  - Rash [Recovering/Resolving]
  - Pruritus [Recovered/Resolved with Sequelae]
  - Skin discolouration [Recovered/Resolved]
  - Osteomyelitis [Recovered/Resolved]
  - Onychomadesis [Recovered/Resolved]
  - Livedo reticularis [Not Recovered/Not Resolved]
  - Rheumatoid vasculitis [Not Recovered/Not Resolved]
  - Protein urine present [Recovering/Resolving]
  - Skin ulcer [Recovered/Resolved]
  - Hypertension [Recovered/Resolved]
  - Vomiting [Recovered/Resolved]
  - Diarrhoea [Recovered/Resolved]
  - Dizziness [Recovered/Resolved]
  - Fall [Recovered/Resolved]
  - Back pain [Recovered/Resolved]
  - Toe amputation [Recovered/Resolved]
  - Pseudomonas infection [Recovered/Resolved]
  - Urinary tract infection [Recovered/Resolved]
  - Fatigue [Not Recovered/Not Resolved]
  - Brachymetatarsia [Recovered/Resolved]
  - Infection [Unknown]

NARRATIVE: CASE EVENT DATE: 20190101
